FAERS Safety Report 9804118 (Version 2)
Quarter: 2014Q1

REPORT INFORMATION
  Report Type: Report from Study
  Country: US (occurrence: US)
  Receive Date: 20140108
  Receipt Date: 20140108
  Transmission Date: 20141002
  Serious: Yes (Hospitalization, Other)
  Sender: FDA-Public Use
  Company Number: US-ROCHE-769788

PATIENT
  Age: 51 Year
  Sex: Male

DRUGS (7)
  1. FOLINIC ACID [Suspect]
     Indication: GASTRIC CANCER
     Dosage: ADMINISTERED OVER 2 HOURS
     Route: 042
  2. LOVENOX [Suspect]
     Indication: PULMONARY EMBOLISM
     Dosage: 60 MG, BID
     Route: 058
  3. 5-FLUOROURACIL [Suspect]
     Indication: GASTRIC CANCER
     Dosage: ADMINISTERED OVER 46-48 HOURS.
     Route: 042
     Dates: start: 20101117
  4. 5-FLUOROURACIL [Suspect]
     Route: 042
     Dates: start: 20101117
  5. IRINOTECAN [Suspect]
     Indication: GASTRIC CANCER
     Route: 065
  6. VISMODEGIB [Suspect]
     Indication: GASTRIC CANCER
     Dosage: 150 MG, QD
     Route: 048
     Dates: start: 20101117, end: 20101221
  7. VISMODEGIB [Suspect]
     Dosage: 150 MG, QD
     Route: 048
     Dates: start: 20101117, end: 20101221

REACTIONS (4)
  - Anaemia [Unknown]
  - Thrombosis [Unknown]
  - Oesophageal haemorrhage [Unknown]
  - Embolism [Unknown]
